FAERS Safety Report 21636204 (Version 7)
Quarter: 2022Q4

REPORT INFORMATION
  Report Type: Report from Study
  Country: CH (occurrence: CH)
  Receive Date: 20221124
  Receipt Date: 20221223
  Transmission Date: 20230113
  Serious: Yes (Hospitalization)
  Sender: FDA-Public Use
  Company Number: CH-ABBVIE-4210797

PATIENT
  Age: 69 Year
  Sex: Male

DRUGS (9)
  1. CARBIDOPA\LEVODOPA [Suspect]
     Active Substance: CARBIDOPA\LEVODOPA
     Indication: Parkinson^s disease
     Dosage: MD: 9 ML, CRD: 2 ML/H, ED: 1 ML
     Route: 050
     Dates: start: 20221118, end: 2022
  2. CARBIDOPA\LEVODOPA [Suspect]
     Active Substance: CARBIDOPA\LEVODOPA
     Dosage: MD: 6 ML, CRD: 2 ML/H, ED: 1 ML
     Dates: start: 20221115, end: 20221117
  3. CARBIDOPA\LEVODOPA [Suspect]
     Active Substance: CARBIDOPA\LEVODOPA
     Dosage: MD: 6 ML, CRD: 2 ML/H, ED: 1 ML
     Route: 050
     Dates: start: 20221117, end: 20221118
  4. CARBIDOPA\LEVODOPA [Suspect]
     Active Substance: CARBIDOPA\LEVODOPA
     Dosage: MD: 6 ML, CRD: 2 ML/H, ED: 1 ML
     Route: 050
     Dates: start: 20221115, end: 20221117
  5. CARBIDOPA\LEVODOPA [Suspect]
     Active Substance: CARBIDOPA\LEVODOPA
     Dosage: 1 CASSETTE/DAY
     Route: 050
     Dates: start: 202211, end: 202212
  6. CARBIDOPA\LEVODOPA [Suspect]
     Active Substance: CARBIDOPA\LEVODOPA
     Dosage: MD: 9 ML, CRD: 2 ML/H, ED: 1 ML?FREQUENCY: 16H THERAPY
     Route: 050
     Dates: start: 20221221
  7. CARBIDOPA\LEVODOPA [Suspect]
     Active Substance: CARBIDOPA\LEVODOPA
     Dosage: 1 CASSETTE/DAY
     Route: 050
     Dates: start: 202211
  8. Acidum mefenamicum	(Ponstan) [Concomitant]
     Indication: Product used for unknown indication
     Dates: start: 20221221, end: 20221221
  9. Levodopum, Benserazidum	(Madopar retard) [Concomitant]
     Indication: Parkinson^s disease
     Dosage: 125 MILLIGRAM
     Route: 048
     Dates: start: 20221221, end: 20221221

REACTIONS (15)
  - Suspected COVID-19 [Unknown]
  - Walking aid user [Not Recovered/Not Resolved]
  - Mobility decreased [Not Recovered/Not Resolved]
  - Dyskinesia [Recovered/Resolved]
  - Asthenia [Not Recovered/Not Resolved]
  - Device use issue [Recovered/Resolved]
  - Akinesia [Not Recovered/Not Resolved]
  - Communication disorder [Not Recovered/Not Resolved]
  - Off label use [Unknown]
  - Cognitive disorder [Not Recovered/Not Resolved]
  - Bradykinesia [Not Recovered/Not Resolved]
  - Medication error [Not Recovered/Not Resolved]
  - Back pain [Not Recovered/Not Resolved]
  - Asthenia [Not Recovered/Not Resolved]
  - Device issue [Recovered/Resolved]

NARRATIVE: CASE EVENT DATE: 20221101
